FAERS Safety Report 10096544 (Version 1)
Quarter: 2014Q2

REPORT INFORMATION
  Report Type: Spontaneous
  Country: US (occurrence: None)
  Receive Date: 20140421
  Receipt Date: 20140421
  Transmission Date: 20141212
  Serious: Yes (Other)
  Sender: FDA-Public Use
  Company Number: None

PATIENT
  Age: 33 Year
  Sex: Male
  Weight: 46.72 kg

DRUGS (2)
  1. SUBOXONE [Suspect]
     Indication: DRUG DEPENDENCE
     Dosage: 1 FILM TID SUBLINGUAL
     Route: 060
     Dates: start: 20140318, end: 20140409
  2. SUBUTEX [Concomitant]

REACTIONS (1)
  - Dysuria [None]
